FAERS Safety Report 25906900 (Version 1)
Quarter: 2025Q4

REPORT INFORMATION
  Report Type: Spontaneous
  Country: US (occurrence: None)
  Receive Date: 20251009
  Receipt Date: 20251009
  Transmission Date: 20260117
  Serious: Yes (Hospitalization)
  Sender: FDA-CTU
  Company Number: None

PATIENT
  Age: 77 Year
  Sex: Male
  Weight: 75.15 kg

DRUGS (3)
  1. WINREVAIR [Suspect]
     Active Substance: SOTATERCEPT-CSRK
     Indication: Pulmonary arterial hypertension
     Dosage: 1 ML EVERY 3 WEEKS SUBCUTANEOUS?
     Route: 058
     Dates: start: 20250506
  2. ELIQUIS [Concomitant]
     Active Substance: APIXABAN
  3. TYVASO [Concomitant]
     Active Substance: TREPROSTINIL

REACTIONS (2)
  - Epistaxis [None]
  - Therapy change [None]

NARRATIVE: CASE EVENT DATE: 20250817
